FAERS Safety Report 25051239 (Version 2)
Quarter: 2025Q1

REPORT INFORMATION
  Report Type: Spontaneous
  Country: US (occurrence: US)
  Receive Date: 20250307
  Receipt Date: 20250311
  Transmission Date: 20250409
  Serious: No
  Sender: Unknown Manufacturer
  Company Number: US-NEURELIS-USNEU24000321

PATIENT

DRUGS (1)
  1. VALTOCO [Suspect]
     Active Substance: DIAZEPAM
     Indication: Epilepsy
     Route: 045
     Dates: start: 20210120

REACTIONS (3)
  - Nervous system disorder [Recovering/Resolving]
  - Ill-defined disorder [Recovering/Resolving]
  - Fatigue [Unknown]
